FAERS Safety Report 10562671 (Version 2)
Quarter: 2014Q4

REPORT INFORMATION
  Report Type: Report from Study
  Country: GB (occurrence: GB)
  Receive Date: 20141104
  Receipt Date: 20141104
  Transmission Date: 20150529
  Serious: Yes (Other)
  Sender: FDA-Public Use
  Company Number: GB-ALEXION PHARMACEUTICALS INC.-A201401624

PATIENT

DRUGS (3)
  1. SOLIRIS [Suspect]
     Active Substance: ECULIZUMAB
     Indication: PAROXYSMAL NOCTURNAL HAEMOGLOBINURIA
     Dosage: 1200 MG, Q2W
     Route: 042
     Dates: start: 20120518
  2. SOLIRIS [Suspect]
     Active Substance: ECULIZUMAB
     Dosage: 1200 MG, Q2W
     Route: 042
     Dates: start: 20120608
  3. SOLIRIS [Suspect]
     Active Substance: ECULIZUMAB
     Dosage: 1200 MG, Q2W
     Route: 042

REACTIONS (9)
  - Lower respiratory tract infection [Unknown]
  - Fatigue [Unknown]
  - Asthenia [Recovering/Resolving]
  - Dyspnoea exertional [Unknown]
  - Pyrexia [Recovered/Resolved]
  - Ocular icterus [Recovering/Resolving]
  - Dyspnoea [Unknown]
  - Inappropriate schedule of drug administration [Unknown]
  - Chromaturia [Unknown]

NARRATIVE: CASE EVENT DATE: 20140420
